FAERS Safety Report 5067995-7 (Version None)
Quarter: 2006Q3

REPORT INFORMATION
  Report Type: 
  Country: None (occurrence: None)
  Receive Date: 20060717
  Receipt Date: 20060411
  Transmission Date: 20061208
  Serious: Yes (Hospitalization)
  Sender: FDA-Public Use
  Company Number: 2006000823

PATIENT
  Sex: Female

DRUGS (4)
  1. TARCEVA [Suspect]
     Indication: NON-SMALL CELL LUNG CANCER
     Dosage: 150 MG (QD), ORAL
     Route: 048
     Dates: start: 20060215, end: 20060308
  2. PREDNISONE TAB [Concomitant]
  3. PULMICORT [Concomitant]
  4. WARFARIN SODIUM [Concomitant]

REACTIONS (1)
  - DYSPNOEA [None]
